FAERS Safety Report 22346234 (Version 1)
Quarter: 2023Q2

REPORT INFORMATION
  Report Type: Spontaneous
  Country: DE (occurrence: DE)
  Receive Date: 20230519
  Receipt Date: 20230519
  Transmission Date: 20230721
  Serious: Yes (Hospitalization)
  Sender: FDA-Public Use
  Company Number: DE-SAMSUNG BIOEPIS-SB-2023-08349

PATIENT
  Age: 40 Year
  Sex: Female
  Weight: 95 kg

DRUGS (7)
  1. PACLITAXEL [Suspect]
     Active Substance: PACLITAXEL
     Indication: Breast cancer female
     Dosage: EVERY 21 DAYS?ROUTE OF ADMIN- INTRAVENOUS (NOT OTHERWISE SPECIFIED) ( INT )?FORM OF ADMIN.- UNKNOWN
     Route: 042
     Dates: start: 20230123, end: 20230427
  2. CARBOPLATIN [Suspect]
     Active Substance: CARBOPLATIN
     Indication: Breast cancer female
     Dosage: 5 AUC?ROUTE OF ADMIN- INTRAVENOUS (NOT OTHERWISE SPECIFIED) ( INT )?FORM OF ADMIN.- UNKNOWN (OTHER/U
     Dates: start: 20230123, end: 20230321
  3. CARBOPLATIN [Suspect]
     Active Substance: CARBOPLATIN
     Dosage: 6 AUC?ROUTE OF ADMIN- INTRAVENOUS (NOT OTHERWISE SPECIFIED) ( INT )?FORM OF ADMIN.- UNKNOWN (OTHER/U
     Route: 042
     Dates: end: 20230427
  4. ONTRUZANT [Suspect]
     Active Substance: TRASTUZUMAB-DTTB
     Indication: Breast cancer female
     Dosage: Q21D?ROUTE OF ADMIN- INTRAVENOUS (NOT OTHERWISE SPECIFIED) ( INT )?FORM OF ADMIN.- UNKNOWN (OTHER/UN
     Dates: start: 20230123, end: 20230427
  5. PACLITAXEL [Suspect]
     Active Substance: PACLITAXEL
     Indication: Breast cancer female
     Dosage: 100 MILLIGRAM/SQ. METER?ROUTE OF ADMIN- INTRAVENOUS (NOT OTHERWISE SPECIFIED) ( INT )?FORM OF ADMIN.
     Dates: end: 20230321
  6. PACLITAXEL [Suspect]
     Active Substance: PACLITAXEL
     Dosage: DAY 1, DAY 8, DAY 15?ROUTE OF ADMIN- INTRAVENOUS (NOT OTHERWISE SPECIFIED) ( INT )?FORM OF ADMIN.- U
     Dates: start: 20230123
  7. PERTUZUMAB [Suspect]
     Active Substance: PERTUZUMAB
     Indication: Breast cancer female
     Dosage: EVERY 21 DAYS?ROUTE OF ADMIN- INTRAVENOUS (NOT OTHERWISE SPECIFIED) ( INT )?FORM OF ADMIN.- UNKNOWN
     Dates: start: 20230123, end: 20230427

REACTIONS (5)
  - Hypokalaemia [Recovered/Resolved]
  - Gastroenteritis [None]
  - Diarrhoea [Not Recovered/Not Resolved]
  - Respiratory tract infection [Recovered/Resolved]
  - Febrile neutropenia [Recovered/Resolved]

NARRATIVE: CASE EVENT DATE: 20230321
